FAERS Safety Report 6817610-4 (Version None)
Quarter: 2010Q3

REPORT INFORMATION
  Report Type: 
  Country: None (occurrence: None)
  Receive Date: 20100706
  Receipt Date: 20100623
  Transmission Date: 20110219
  Serious: Yes (Hospitalization)
  Sender: FDA-Public Use
  Company Number: PHHY2010US41211

PATIENT
  Sex: Female
  Weight: 58.13 kg

DRUGS (1)
  1. EXJADE [Suspect]
     Indication: IRON METABOLISM DISORDER
     Dosage: 2000 MG,
     Route: 048
     Dates: start: 20071217

REACTIONS (2)
  - PRESYNCOPE [None]
  - SYNCOPE [None]
